FAERS Safety Report 25703084 (Version 1)
Quarter: 2025Q3

REPORT INFORMATION
  Report Type: Report from Study
  Country: EU (occurrence: EU)
  Receive Date: 20250819
  Receipt Date: 20250819
  Transmission Date: 20251020
  Serious: Yes (Hospitalization)
  Sender: ABBVIE
  Company Number: EU-ABBVIE-6420086

PATIENT
  Age: 61 Year
  Sex: Female

DRUGS (2)
  1. FOSCARBIDOPA\FOSLEVODOPA [Suspect]
     Active Substance: FOSCARBIDOPA\FOSLEVODOPA
     Indication: Parkinson^s disease
     Route: 058
     Dates: start: 20250811
  2. PRAMIPEXOLE [Concomitant]
     Active Substance: PRAMIPEXOLE
     Indication: Parkinson^s disease
     Dosage: FORM STRENGTH: 2.1 MG
     Route: 048
     Dates: start: 2020

REACTIONS (2)
  - Puncture site swelling [Recovering/Resolving]
  - Subcutaneous drug absorption impaired [Unknown]

NARRATIVE: CASE EVENT DATE: 20250801
